FAERS Safety Report 8252671-X (Version None)
Quarter: 2012Q2

REPORT INFORMATION
  Report Type: 
  Country: None (occurrence: None)
  Receive Date: 20120402
  Receipt Date: 20110809
  Transmission Date: 20120825
  Serious: No
  Sender: FDA-Public Use
  Company Number: US-ABBOTT-11P-163-0847024-00

PATIENT
  Sex: Male
  Weight: 71.732 kg

DRUGS (4)
  1. ANDROGEL [Suspect]
     Dosage: ONE PUMP ONCE DAILY
     Route: 061
     Dates: start: 20110807
  2. LYRICA [Concomitant]
     Indication: NEUROPATHY PERIPHERAL
  3. ANDROGEL [Suspect]
     Indication: BLOOD TESTOSTERONE DECREASED
     Dosage: FOUR PUMPS ONCE DAILY
     Route: 061
     Dates: start: 20110501, end: 20110708
  4. ANDROGEL [Suspect]
     Dosage: TWO PUMPS ONCE DAILY
     Route: 061
     Dates: start: 20110708, end: 20110807

REACTIONS (3)
  - TENSION [None]
  - ACNE [None]
  - BLOOD TESTOSTERONE INCREASED [None]
